FAERS Safety Report 20219369 (Version 2)
Quarter: 2021Q4

REPORT INFORMATION
  Report Type: Report from Study
  Country: ES (occurrence: None)
  Receive Date: 20211222
  Receipt Date: 20211224
  Transmission Date: 20220303
  Serious: Yes (Life-Threatening, Other)
  Sender: FDA-Public Use
  Company Number: 2021A882149

PATIENT
  Age: 10 Year
  Sex: Male

DRUGS (1)
  1. ESOMEPRAZOLE [Interacting]
     Active Substance: ESOMEPRAZOLE
     Indication: Eosinophilic oesophagitis
     Route: 048

REACTIONS (4)
  - Gastritis [Unknown]
  - Food interaction [Unknown]
  - Anaphylactic reaction [Unknown]
  - Urticaria [Unknown]
